FAERS Safety Report 20754800 (Version 1)
Quarter: 2022Q2

REPORT INFORMATION
  Report Type: Spontaneous
  Country: DK (occurrence: DK)
  Receive Date: 20220427
  Receipt Date: 20220427
  Transmission Date: 20220721
  Serious: Yes (Other)
  Sender: FDA-Public Use
  Company Number: DK-SUN PHARMACEUTICAL INDUSTRIES LTD-2022R1-334051

PATIENT
  Age: 60 Year
  Sex: Female

DRUGS (2)
  1. TACROLIMUS [Interacting]
     Active Substance: TACROLIMUS
     Indication: Photopheresis
     Dosage: 0.25 MILLIGRAM, DAILY
     Route: 065
  2. CLARITHROMYCIN [Interacting]
     Active Substance: CLARITHROMYCIN
     Indication: Photopheresis
     Dosage: 1000 MILLIGRAM, DAILY
     Route: 065

REACTIONS (9)
  - Delirium [Unknown]
  - Schizophrenia [Unknown]
  - Affective disorder [Unknown]
  - Catatonia [Unknown]
  - Locked-in syndrome [Unknown]
  - Drug interaction [Unknown]
  - Drug level increased [Unknown]
  - Encephalopathy [Unknown]
  - Thrombotic microangiopathy [Unknown]
